FAERS Safety Report 5824331-3 (Version None)
Quarter: 2008Q3

REPORT INFORMATION
  Report Type: 
  Country: None (occurrence: None)
  Receive Date: 20080728
  Receipt Date: 20080717
  Transmission Date: 20090109
  Serious: Yes (Disabling)
  Sender: FDA-Public Use
  Company Number: AU-JNJFOC-20080704326

PATIENT
  Sex: Male

DRUGS (10)
  1. DURAGESIC-100 [Suspect]
     Route: 062
  2. DURAGESIC-100 [Suspect]
     Indication: DRUG USE FOR UNKNOWN INDICATION
     Route: 062
  3. OMEPRAZOLE [Concomitant]
     Route: 065
  4. VALIUM [Concomitant]
     Route: 065
  5. ORUDIS SR [Concomitant]
     Route: 065
  6. ASCORBIC ACID [Concomitant]
     Route: 065
  7. GLUCOSAMINE [Concomitant]
     Route: 065
  8. PANADEINE [Concomitant]
     Route: 065
  9. DIGESIC [Concomitant]
     Route: 065
  10. AUGMENTIN '125' [Concomitant]
     Indication: INFLUENZA LIKE ILLNESS
     Route: 065

REACTIONS (3)
  - DRUG DISPENSING ERROR [None]
  - INFLUENZA LIKE ILLNESS [None]
  - VISUAL ACUITY REDUCED [None]
